FAERS Safety Report 9528257 (Version 2)
Quarter: 2013Q4

REPORT INFORMATION
  Report Type: Spontaneous
  Country: IT (occurrence: None)
  Receive Date: 20130913
  Receipt Date: 20131112
  Transmission Date: 20140711
  Serious: Yes (Hospitalization)
  Sender: FDA-Public Use
  Company Number: AUR-APL-2013-07645

PATIENT
  Age: 73 Year
  Sex: Male

DRUGS (4)
  1. LEVOFLOXACIN (LEVOFLOXACIN) [Suspect]
     Indication: HYPERPYREXIA
     Dosage: (2 DOSAGE FORMS, 1 D), ORAL
     Route: 048
     Dates: start: 20130822, end: 20130828
  2. IDROQUARK (SALUTEC) [Suspect]
     Indication: HYPERPYREXIA
     Dosage: (1 DOSAGE FORMS, 1 D)
     Route: 048
     Dates: start: 20060101, end: 20130828
  3. COMPETACT (MOPADAY) [Concomitant]
  4. LIBRADIN (CEFRADINE) [Concomitant]

REACTIONS (2)
  - Hypotension [None]
  - Renal failure [None]
